FAERS Safety Report 6254007-2 (Version None)
Quarter: 2009Q3

REPORT INFORMATION
  Report Type: 
  Country: None (occurrence: None)
  Receive Date: 20090702
  Receipt Date: 20090618
  Transmission Date: 20100115
  Serious: Yes (Life-Threatening)
  Sender: FDA-Public Use
  Company Number: US-ROCHE-639557

PATIENT
  Sex: Female
  Weight: 54.4 kg

DRUGS (3)
  1. PEG-INTERFERON ALFA 2A (RO 25-8310) [Suspect]
     Route: 065
  2. RIBAVIRIN [Suspect]
     Route: 065
  3. BLINDED NITAZOXANIDE [Suspect]
     Route: 065
     Dates: start: 20080417, end: 20080617

REACTIONS (1)
  - LUNG ADENOCARCINOMA METASTATIC [None]
